FAERS Safety Report 5483288-8 (Version None)
Quarter: 2007Q4

REPORT INFORMATION
  Report Type: 
  Country: None (occurrence: None)
  Receive Date: 20071012
  Receipt Date: 20071002
  Transmission Date: 20080405
  Serious: Yes (Other)
  Sender: FDA-Public Use
  Company Number: PHNR2007AU01935

PATIENT
  Age: 45 Year
  Sex: Male

DRUGS (3)
  1. PAPAVERINE HYDROCHLORIDE [Suspect]
     Dosage: 6ML DAILY
     Dates: start: 20060415, end: 20060415
  2. PROSTAGLANDIN E1 [Suspect]
     Dosage: UNK, QD
     Route: 017
  3. PHENTOLAMINE MESYLATE [Suspect]
     Dosage: 2ML DAILY
     Dates: start: 20060315, end: 20060315

REACTIONS (1)
  - PEYRONIE'S DISEASE [None]
